FAERS Safety Report 12898234 (Version 3)
Quarter: 2017Q2

REPORT INFORMATION
  Report Type: Spontaneous
  Country: JP (occurrence: JP)
  Receive Date: 20161031
  Receipt Date: 20170421
  Transmission Date: 20170830
  Serious: Yes (Other)
  Sender: FDA-Public Use
  Company Number: JP-AMGEN-JPNSP2016152361

PATIENT
  Age: 59 Year
  Sex: Female
  Weight: 47 kg

DRUGS (13)
  1. METHYCOBAL [Concomitant]
     Active Substance: METHYLCOBALAMIN
     Dosage: 500 MUG, TID
     Route: 048
     Dates: start: 20160905, end: 20160926
  2. DECADRON [Concomitant]
     Active Substance: DEXAMETHASONE
     Dosage: 8 MG, BID
     Route: 048
     Dates: start: 20160905, end: 20160910
  3. DOMPERIDONE [Concomitant]
     Active Substance: DOMPERIDONE
     Dosage: 10 MG, TID
     Route: 048
     Dates: start: 20160905, end: 20160912
  4. REBAMIPIDE [Concomitant]
     Active Substance: REBAMIPIDE
     Dosage: 100 MG, TID
     Route: 048
     Dates: start: 20160905, end: 20160912
  5. HERCEPTIN [Concomitant]
     Active Substance: TRASTUZUMAB
     Indication: BREAST CANCER
     Dosage: 370 MG, QD
     Route: 041
     Dates: start: 20160905, end: 20160905
  6. BIO-THREE [Concomitant]
     Active Substance: HERBALS
     Dosage: 1 DF, TID
     Route: 048
     Dates: start: 20160905, end: 20160912
  7. G-LASTA [Suspect]
     Active Substance: PEGFILGRASTIM
     Indication: COLONY STIMULATING FACTOR PROPHYLAXIS
     Dosage: 3.6 MG, QD
     Route: 058
     Dates: start: 20160907, end: 20160907
  8. GRANISETRON [Concomitant]
     Active Substance: GRANISETRON
     Dosage: 3 MG, QD
     Route: 041
     Dates: start: 20160905, end: 20160905
  9. DECADRON [Concomitant]
     Active Substance: DEXAMETHASONE
     Dosage: 9.9 MG, QD
     Route: 041
     Dates: start: 20160905, end: 20160905
  10. ENDOXAN                            /00021101/ [Suspect]
     Active Substance: CYCLOPHOSPHAMIDE
     Indication: BREAST CANCER
     Dosage: 860 MG, QD
     Route: 041
     Dates: start: 20160905, end: 20160905
  11. DOCETAXEL. [Suspect]
     Active Substance: DOCETAXEL
     Indication: BREAST CANCER
     Dosage: 110 MG, QD
     Route: 041
     Dates: start: 20160905, end: 20160905
  12. JUVELA                             /00110502/ [Concomitant]
     Dosage: 50 MG, TID
     Route: 048
     Dates: start: 20160905, end: 20160926
  13. MAGMITT [Concomitant]
     Active Substance: MAGNESIUM OXIDE
     Dosage: 330 MG, TID
     Route: 048
     Dates: start: 20160905, end: 20160912

REACTIONS (1)
  - Erythema multiforme [Recovered/Resolved]

NARRATIVE: CASE EVENT DATE: 20160907
